FAERS Safety Report 22096897 (Version 2)
Quarter: 2023Q2

REPORT INFORMATION
  Report Type: Spontaneous
  Country: US (occurrence: US)
  Receive Date: 20230315
  Receipt Date: 20230522
  Transmission Date: 20230721
  Serious: Yes (Other)
  Sender: FDA-Public Use
  Company Number: US-JNJFOC-20230317282

PATIENT
  Age: 40 Year
  Sex: Female

DRUGS (3)
  1. ELMIRON [Suspect]
     Active Substance: PENTOSAN POLYSULFATE SODIUM
     Indication: Hypertonic bladder
     Route: 048
  2. ELMIRON [Suspect]
     Active Substance: PENTOSAN POLYSULFATE SODIUM
     Dosage: 1-3 TIMES A DAY, THERAPY START DATE GIVEN ON 01/AUG/2004
     Route: 048
  3. TAMSULOSIN [Concomitant]
     Active Substance: TAMSULOSIN
     Indication: Hypertonic bladder
     Dates: start: 20040101

REACTIONS (2)
  - Retinal injury [Unknown]
  - Maculopathy [Unknown]

NARRATIVE: CASE EVENT DATE: 20040101
